FAERS Safety Report 23768551 (Version 1)
Quarter: 2024Q2

REPORT INFORMATION
  Report Type: Spontaneous
  Country: US (occurrence: None)
  Receive Date: 20240419
  Receipt Date: 20240419
  Transmission Date: 20240716
  Serious: No
  Sender: FDA-Public Use
  Company Number: None

PATIENT
  Age: 63 Year
  Sex: Female

DRUGS (4)
  1. ZARXIO [Suspect]
     Active Substance: FILGRASTIM-SNDZ
     Indication: Neutropenia
     Dosage: OTHER QUANTITY : 1 SYRINGE;?FREQUENCY : TWICE A WEEK;?
     Route: 058
     Dates: start: 20210212
  2. DROSPIR/ETHI [Concomitant]
  3. DULOXETINE HYDROCHLORIDE [Concomitant]
     Active Substance: DULOXETINE HYDROCHLORIDE
  4. ZARXIO INJ [Concomitant]

REACTIONS (2)
  - Cardiac operation [None]
  - Atrial fibrillation [None]

NARRATIVE: CASE EVENT DATE: 20240401
